FAERS Safety Report 14481666 (Version 4)
Quarter: 2018Q2

REPORT INFORMATION
  Report Type: Spontaneous
  Country: LY (occurrence: LY)
  Receive Date: 20180202
  Receipt Date: 20180529
  Transmission Date: 20180711
  Serious: Yes (Other)
  Sender: FDA-Public Use
  Company Number: LY-CELLTRION INC.-2018LY017666

PATIENT

DRUGS (5)
  1. METHOTREXATE (METHOTREXATE SODIUM) [Concomitant]
     Active Substance: METHOTREXATE SODIUM
     Dosage: UNK
  2. REMSIMA [Suspect]
     Active Substance: INFLIXIMAB
     Indication: RHEUMATOID ARTHRITIS
     Dosage: 200 MG, ONCE
     Route: 041
     Dates: start: 20171231, end: 20171231
  3. PARACETAMOL [Concomitant]
     Active Substance: ACETAMINOPHEN
     Indication: PREMEDICATION
     Dosage: 500 UNK
     Route: 041
     Dates: start: 20180121
  4. REMSIMA [Suspect]
     Active Substance: INFLIXIMAB
     Dosage: 200 MG, ONCE
     Route: 041
     Dates: start: 20180121, end: 20180121
  5. HYDROCORTISONE. [Concomitant]
     Active Substance: HYDROCORTISONE
     Indication: PREMEDICATION
     Dosage: 200 MG
     Route: 042
     Dates: start: 20180121

REACTIONS (11)
  - Underdose [Unknown]
  - Chills [Recovered/Resolved]
  - Cyanosis [Recovered/Resolved]
  - Inappropriate schedule of drug administration [Unknown]
  - Dyspnoea [Recovered/Resolved]
  - Pneumonia [Recovered/Resolved]
  - Hypoxia [Recovered/Resolved]
  - Dizziness [Recovered/Resolved]
  - Tachycardia [Recovered/Resolved]
  - Breath sounds abnormal [Recovered/Resolved]
  - Hypotension [Recovered/Resolved]

NARRATIVE: CASE EVENT DATE: 201801
